FAERS Safety Report 5792185-X (Version None)
Quarter: 2008Q2

REPORT INFORMATION
  Report Type: 
  Country: None (occurrence: None)
  Receive Date: 20080626
  Receipt Date: 20080609
  Transmission Date: 20081010
  Serious: No
  Sender: FDA-Public Use
  Company Number: US-BOEHRINGER INGELHEIM GMBH, GERMANY-2008-BP-08937BP

PATIENT
  Age: 34 Year
  Sex: Female

DRUGS (1)
  1. ZANTAC 75 [Suspect]
     Dates: start: 20080401

REACTIONS (3)
  - DRY EYE [None]
  - EYE PRURITUS [None]
  - PHOTOSENSITIVITY REACTION [None]
